FAERS Safety Report 7134833-8 (Version None)
Quarter: 2010Q4

REPORT INFORMATION
  Report Type: 
  Country: None (occurrence: None)
  Receive Date: 20101203
  Receipt Date: 20101122
  Transmission Date: 20110411
  Serious: Yes (Other)
  Sender: FDA-Public Use
  Company Number: US-JNJFOC-20101103426

PATIENT
  Sex: Female
  Weight: 65.77 kg

DRUGS (3)
  1. REMICADE [Suspect]
     Indication: CROHN'S DISEASE
     Dosage: ON THERAPY FOR 4 YEARS
     Route: 042
  2. REMICADE [Suspect]
     Route: 042
  3. IMODIUM [Concomitant]
     Indication: DIARRHOEA
     Route: 048

REACTIONS (7)
  - BACK PAIN [None]
  - DRUG ERUPTION [None]
  - DRY SKIN [None]
  - GASTRIC DISORDER [None]
  - INCISION SITE COMPLICATION [None]
  - LUPUS-LIKE SYNDROME [None]
  - PAIN IN EXTREMITY [None]
